FAERS Safety Report 23232561 (Version 5)
Quarter: 2025Q1

REPORT INFORMATION
  Report Type: Spontaneous
  Country: US (occurrence: US)
  Receive Date: 20231128
  Receipt Date: 20250222
  Transmission Date: 20250409
  Serious: Yes (Other)
  Sender: SANOFI AVENTIS
  Company Number: US-SA-SAC20231120001251

PATIENT
  Age: 12 Year
  Sex: Female

DRUGS (6)
  1. DUPIXENT [Suspect]
     Active Substance: DUPILUMAB
     Indication: Dermatitis atopic
     Route: 058
     Dates: start: 20231010, end: 20231010
  2. DUPIXENT [Suspect]
     Active Substance: DUPILUMAB
     Indication: Eczema
     Dosage: 200 MG, QOW
     Route: 058
     Dates: start: 20231024
  3. DUPILUMAB [Suspect]
     Active Substance: DUPILUMAB
     Indication: Eczema
     Dosage: 200 MG, QOW
     Route: 058
     Dates: start: 20240305
  4. DUPILUMAB [Suspect]
     Active Substance: DUPILUMAB
     Indication: Dermatitis atopic
  5. XYZAL [Concomitant]
     Active Substance: LEVOCETIRIZINE DIHYDROCHLORIDE
  6. SINGULAIR [Concomitant]
     Active Substance: MONTELUKAST SODIUM

REACTIONS (15)
  - Pneumonia [Recovered/Resolved]
  - Contusion [Recovered/Resolved]
  - Pharyngitis streptococcal [Recovered/Resolved]
  - Rhinorrhoea [Unknown]
  - Rhinovirus infection [Recovered/Resolved]
  - Exposure to toxic agent [Recovered/Resolved]
  - Cellulitis [Recovered/Resolved]
  - Injection site discomfort [Recovered/Resolved]
  - Ocular hyperaemia [Unknown]
  - Pruritus [Unknown]
  - Rash [Recovered/Resolved]
  - Eczema [Recovering/Resolving]
  - Arthralgia [Unknown]
  - Injection site bruising [Recovered/Resolved]
  - Injection site pain [Recovered/Resolved]

NARRATIVE: CASE EVENT DATE: 20231001
